FAERS Safety Report 7456457-5 (Version None)
Quarter: 2011Q2

REPORT INFORMATION
  Report Type: 
  Country: None (occurrence: None)
  Receive Date: 20110426
  Receipt Date: 20110411
  Transmission Date: 20111010
  Serious: Yes (Other)
  Sender: FDA-Public Use
  Company Number: TUK2011A00045

PATIENT
  Age: 58 Year
  Sex: Female

DRUGS (7)
  1. ENALAPRIL MALEATE [Concomitant]
  2. CLOTRIMAZOLE [Concomitant]
  3. E45 (PARAFFIN, LIQUID, LANOLIN, WHITE SOFT PARAFFIN) [Concomitant]
  4. FUROSEMIDE [Concomitant]
  5. LEVOTHYROXINE SODIUM [Concomitant]
  6. METFORMIN(METFORMIN) [Concomitant]
  7. ACTOS [Suspect]
     Indication: PRODUCT USED FOR UNKNOWN INDICATION
     Dates: start: 20110331

REACTIONS (1)
  - HYPERSENSITIVITY [None]
